FAERS Safety Report 6239176-2 (Version None)
Quarter: 2009Q2

REPORT INFORMATION
  Report Type: 
  Country: None (occurrence: None)
  Receive Date: 20090618
  Receipt Date: 20090618
  Transmission Date: 20091009
  Serious: Yes (Other)
  Sender: FDA-Public Use
  Company Number: None

PATIENT
  Sex: Male
  Weight: 86.1834 kg

DRUGS (1)
  1. ZICAM 20 MEDICATED SWABS [Suspect]
     Indication: NASOPHARYNGITIS
     Dosage: 1 SWB QD X 4 DAYS
     Dates: start: 20051101, end: 20051106

REACTIONS (1)
  - ANOSMIA [None]
